FAERS Safety Report 19091847 (Version 1)
Quarter: 2021Q2

REPORT INFORMATION
  Report Type: Spontaneous
  Country: US (occurrence: US)
  Receive Date: 20210402
  Receipt Date: 20210402
  Transmission Date: 20210717
  Serious: Yes (Death)
  Sender: FDA-Public Use
  Company Number: None

PATIENT
  Age: 71 Year
  Sex: Female
  Weight: 65.52 kg

DRUGS (10)
  1. DEXAMETHASONE 4MG [Concomitant]
     Active Substance: DEXAMETHASONE
  2. AMLODIPINE [Concomitant]
     Active Substance: AMLODIPINE BESYLATE
  3. LISINOPRIL 10MG [Concomitant]
     Active Substance: LISINOPRIL
  4. PRAVASTATIN. [Concomitant]
     Active Substance: PRAVASTATIN
  5. VITAMIN B12 1000MCG [Concomitant]
  6. OMEGA 3?6?9 [Concomitant]
     Active Substance: FISH OIL
  7. INLYTA [Suspect]
     Active Substance: AXITINIB
     Indication: RENAL CANCER
     Route: 048
     Dates: start: 20201203, end: 20210327
  8. ALPRAZOLAM 0.25MG [Concomitant]
     Active Substance: ALPRAZOLAM
  9. HYDROCODONE/ACETAMINOPHEN 7.5?325MG [Concomitant]
  10. SENNA PLUS 50?8.6MG [Concomitant]

REACTIONS (1)
  - Death [None]

NARRATIVE: CASE EVENT DATE: 20210327
